FAERS Safety Report 10053836 (Version 1)
Quarter: 2014Q2

REPORT INFORMATION
  Report Type: Report from Study
  Country: MX (occurrence: MX)
  Receive Date: 20140402
  Receipt Date: 20140402
  Transmission Date: 20141212
  Serious: Yes (Death, Hospitalization, Other)
  Sender: FDA-Public Use
  Company Number: PHHY2014MX039301

PATIENT
  Age: 88 Year
  Sex: Female

DRUGS (7)
  1. EXELON PATCH [Suspect]
     Indication: DEMENTIA ALZHEIMER^S TYPE
     Dosage: 4.6 MG (5 CM2), 1 DAILY, SOMETIMES SHE USED 1 PATCH AND SOMETIMES SHE USED 1/4 OF A PATCH
     Route: 062
  2. EXELON PATCH [Suspect]
     Dosage: 9.5 MG (10 CM2), 1 OR 3/4 DAILY
     Route: 062
  3. EBIXA [Concomitant]
     Indication: DEMENTIA ALZHEIMER^S TYPE
     Dosage: 1 DF, DAILY
     Route: 048
  4. JANUVIA [Concomitant]
     Indication: DIABETES MELLITUS
     Dosage: 1 DF, DAILY
     Route: 048
  5. GLUCOVANCE [Concomitant]
     Indication: DIABETES MELLITUS
     Dosage: 1.5 DF, DAILY
     Route: 048
  6. ASPIRIN PROTEC [Concomitant]
     Indication: THROMBOSIS
     Dosage: 1 DF, DAILY
     Route: 048
  7. CALCITRIOL [Concomitant]
     Indication: OSTEOPOROSIS
     Dosage: 1 DF, DAILY
     Route: 048

REACTIONS (9)
  - Sepsis [Fatal]
  - Eschar [Not Recovered/Not Resolved]
  - Wound complication [Not Recovered/Not Resolved]
  - Hyperglycaemia [Not Recovered/Not Resolved]
  - Upper limb fracture [Recovered/Resolved]
  - Weight decreased [Not Recovered/Not Resolved]
  - Fall [Recovered/Resolved]
  - Depression [Not Recovered/Not Resolved]
  - Wrong technique in drug usage process [Not Recovered/Not Resolved]
